FAERS Safety Report 4879130-6 (Version None)
Quarter: 2006Q1

REPORT INFORMATION
  Report Type: 
  Country: None (occurrence: None)
  Receive Date: 20060112
  Receipt Date: 20051108
  Transmission Date: 20060701
  Serious: Yes (Hospitalization)
  Sender: FDA-Public Use
  Company Number: PHRM2005FR02930

PATIENT
  Age: 68 Year
  Sex: Female

DRUGS (15)
  1. NIDREL [Suspect]
     Indication: HYPERTENSION
     Dosage: 20 MG, QD
     Route: 048
     Dates: start: 20050823, end: 20050921
  2. MOPRAL [Suspect]
     Dosage: 20 MG, QD
     Route: 048
     Dates: start: 20050701, end: 20050921
  3. ACETAMINOPHEN [Concomitant]
     Indication: ARTHRALGIA
     Dosage: 3 G, QD
     Route: 048
     Dates: start: 20050630, end: 20050921
  4. KARDEGIC [Concomitant]
     Dosage: 160 MG, QD
     Route: 048
     Dates: start: 20050630, end: 20050923
  5. DEROXAT [Concomitant]
     Dosage: 20 MG, QD
     Route: 048
     Dates: end: 20050926
  6. LEXOMIL [Concomitant]
     Dosage: 1.5 MG, QD
     Route: 048
     Dates: end: 20050926
  7. LIPUR [Concomitant]
     Indication: BLOOD TRIGLYCERIDES INCREASED
     Dosage: 900 UG, QD
     Route: 048
     Dates: start: 20050811, end: 20050926
  8. ESIDRIX [Suspect]
     Indication: HYPERTENSION
     Dosage: 12.5 MG, QD
     Route: 048
     Dates: start: 20050823, end: 20050921
  9. LOVENOX [Concomitant]
  10. TARDYFERON [Concomitant]
     Dosage: 30 MG, QD
     Route: 048
  11. ISOPTIN [Concomitant]
     Dosage: 60 MG, QD
     Route: 065
  12. TRANSIPEG [Concomitant]
     Route: 048
  13. INSULATARD NPH HUMAN [Concomitant]
  14. ACTRAPID HUMAN [Concomitant]
  15. APROVEL [Concomitant]
     Indication: HYPERTENSION
     Route: 048

REACTIONS (1)
  - NEUTROPENIA [None]
